FAERS Safety Report 4333482-4 (Version None)
Quarter: 2004Q2

REPORT INFORMATION
  Report Type: 
  Country: None (occurrence: None)
  Receive Date: 20040401
  Receipt Date: 20031213
  Transmission Date: 20050107
  Serious: Yes (Hospitalization, Other)
  Sender: FDA-Public Use
  Company Number: KII-2003-0008869

PATIENT
  Age: 19 Year
  Sex: Male

DRUGS (6)
  1. MORPHINE SULFATE [Suspect]
     Indication: DRUG USE FOR UNKNOWN INDICATION
  2. BENZODIAZEPINE DERIVATIES [Suspect]
     Indication: DRUG USE FOR UNKNOWN INDICATION
  3. MARIJUANA (CANNABIS) [Suspect]
     Indication: DRUG USE FOR UNKNOWN INDICATION
  4. AMPHETAMINE SULFATE TAB [Concomitant]
  5. ANTIDEPRESSANTS [Concomitant]
  6. SSRI [Concomitant]

REACTIONS (9)
  - AGITATION [None]
  - BLOOD CREATININE INCREASED [None]
  - COMA [None]
  - CYANOSIS [None]
  - DRUG SCREEN POSITIVE [None]
  - HYPOTENSION [None]
  - OVERDOSE [None]
  - PULMONARY OEDEMA [None]
  - VOMITING [None]
